FAERS Safety Report 9122404 (Version 2)
Quarter: 2013Q2

REPORT INFORMATION
  Report Type: Report from Study
  Country: BR (occurrence: BR)
  Receive Date: 20130227
  Receipt Date: 20130506
  Transmission Date: 20140414
  Serious: Yes (Life-Threatening, Other)
  Sender: FDA-Public Use
  Company Number: PHHY2013BR018423

PATIENT
  Sex: Female

DRUGS (2)
  1. RITALIN LA [Suspect]
     Dosage: 30 MG, UNK
  2. OMEPRAZOLE [Concomitant]
     Dosage: 1 DF, PRN
     Route: 048

REACTIONS (8)
  - Apparent death [Unknown]
  - Heart rate increased [Recovered/Resolved]
  - Weight decreased [Unknown]
  - Persecutory delusion [Recovered/Resolved]
  - Fear [Unknown]
  - Wrong drug administered [Recovered/Resolved]
  - Dizziness [Recovered/Resolved]
  - Nausea [Recovered/Resolved]
